FAERS Safety Report 6567716-2 (Version None)
Quarter: 2010Q1

REPORT INFORMATION
  Report Type: 
  Country: None (occurrence: None)
  Receive Date: 20100203
  Receipt Date: 20100127
  Transmission Date: 20100710
  Serious: Yes (Other)
  Sender: FDA-Public Use
  Company Number: US-PFIZER INC-2010012328

PATIENT
  Sex: Female
  Weight: 52.616 kg

DRUGS (4)
  1. CELEBREX [Suspect]
     Indication: RHEUMATOID ARTHRITIS
     Dosage: 200 MG, 2X/DAY
     Route: 048
     Dates: start: 20060101
  2. PREDNISONE [Concomitant]
  3. ETANERCEPT [Concomitant]
  4. METHOTREXATE SODIUM [Concomitant]

REACTIONS (1)
  - SINUS DISORDER [None]
